FAERS Safety Report 20237461 (Version 3)
Quarter: 2022Q1

REPORT INFORMATION
  Report Type: Spontaneous
  Country: US (occurrence: US)
  Receive Date: 20211228
  Receipt Date: 20220310
  Transmission Date: 20220424
  Serious: Yes (Other)
  Sender: FDA-Public Use
  Company Number: US-PFIZER INC-202101797221

PATIENT
  Age: 52 Year
  Sex: Female
  Weight: 83.91 kg

DRUGS (1)
  1. DEPO-PROVERA [Suspect]
     Active Substance: MEDROXYPROGESTERONE ACETATE
     Indication: Endometriosis
     Dosage: FROM THE LATE 1980^S UNTIL 1993, GOT A SHOT EVERY 3 MONTHS IN HER HIP
     Dates: end: 1993

REACTIONS (8)
  - Endometriosis ablation [Unknown]
  - Hormone level abnormal [Unknown]
  - Bone loss [Not Recovered/Not Resolved]
  - Pain [Not Recovered/Not Resolved]
  - Osteoporosis [Not Recovered/Not Resolved]
  - Anxiety [Unknown]
  - Maternal exposure during pregnancy [Unknown]
  - Off label use [Unknown]
